FAERS Safety Report 12017092 (Version 1)
Quarter: 2016Q1

REPORT INFORMATION
  Report Type: Spontaneous
  Country: US (occurrence: US)
  Receive Date: 20160205
  Receipt Date: 20160205
  Transmission Date: 20160526
  Serious: No
  Sender: FDA-Public Use
  Company Number: US-AMGEN-USASP2016010848

PATIENT
  Age: 71 Year
  Sex: Male

DRUGS (7)
  1. NEULASTA [Suspect]
     Active Substance: PEGFILGRASTIM
     Indication: NEUTROPHIL COUNT ABNORMAL
     Dosage: UNK
     Route: 065
  2. DEXAMETHASONE. [Concomitant]
     Active Substance: DEXAMETHASONE
     Dosage: 4 MG, (ON THE DAY BEFORE, DAY OF, AND DAY AFTER THERAPY)
  3. IBUPROFEN. [Concomitant]
     Active Substance: IBUPROFEN
     Dosage: 600 MG, UNK
  4. TAXOTERE [Concomitant]
     Active Substance: DOCETAXEL
     Indication: NEOPLASM MALIGNANT
     Dosage: UNK
  5. LUPRON [Concomitant]
     Active Substance: LEUPROLIDE ACETATE
     Dosage: UNK
     Dates: start: 20151109
  6. PREDNISONE. [Concomitant]
     Active Substance: PREDNISONE
     Dosage: 5 ML, BID
  7. METHOCARBAMOL. [Concomitant]
     Active Substance: METHOCARBAMOL
     Dosage: UNK

REACTIONS (9)
  - Bone pain [Unknown]
  - Alopecia [Unknown]
  - Discomfort [Unknown]
  - Fear [Unknown]
  - Flushing [Unknown]
  - Skin disorder [Unknown]
  - Neuropathy peripheral [Recovered/Resolved]
  - Memory impairment [Unknown]
  - Pain of skin [Unknown]

NARRATIVE: CASE EVENT DATE: 20160127
